FAERS Safety Report 8828139 (Version 1)
Quarter: 2012Q4

REPORT INFORMATION
  Report Type: 
  Country: HU (occurrence: HU)
  Receive Date: 20121005
  Receipt Date: 20121005
  Transmission Date: 20130627
  Serious: Yes (Other)
  Sender: FDA-Public Use
  Company Number: HU-PFIZER INC-2012242541

PATIENT
  Age: 67 Year
  Sex: Female
  Weight: 88 kg

DRUGS (12)
  1. XALATAN [Suspect]
     Indication: GLAUCOMA
     Dosage: 1 Gtt, 1x/day
     Route: 047
     Dates: start: 2010
  2. BISOBLOC [Concomitant]
     Dosage: UNK
  3. NEBIVOLOL [Concomitant]
     Dosage: UNK
     Dates: start: 201108
  4. PORTIRON HCT [Concomitant]
     Dosage: UNK
  5. MEFORAL [Concomitant]
     Dosage: UNK
  6. HUMULIN M3 [Concomitant]
     Dosage: UNK
     Dates: start: 20120912
  7. TORVATEC [Concomitant]
     Dosage: UNK
  8. MAGNESIUM SANDOZ [Concomitant]
     Dosage: UNK
     Dates: start: 2011
  9. ASPIRIN FORTE [Concomitant]
     Dosage: started 3 years ago
  10. AMLODIPIN SANDOZ [Concomitant]
     Dosage: UNK
  11. AMARYL [Concomitant]
     Dosage: UNK
     Dates: end: 201209
  12. TORVALIPIN [Concomitant]
     Dosage: UNK
     Dates: end: 2011

REACTIONS (5)
  - Visual impairment [Not Recovered/Not Resolved]
  - Cataract [Not Recovered/Not Resolved]
  - Cholelithiasis [Unknown]
  - Spinal disorder [Unknown]
  - Arthropathy [Unknown]
